FAERS Safety Report 17372305 (Version 1)
Quarter: 2020Q1

REPORT INFORMATION
  Report Type: Spontaneous
  Country: US (occurrence: US)
  Receive Date: 20200205
  Receipt Date: 20200205
  Transmission Date: 20200409
  Serious: Yes (Other)
  Sender: FDA-Public Use
  Company Number: US-BAYER-2020-019461

PATIENT
  Age: 55 Year
  Sex: Male
  Weight: 56.69 kg

DRUGS (15)
  1. LINEZOLID. [Suspect]
     Active Substance: LINEZOLID
     Indication: TUBERCULOSIS
     Dosage: 600 MG, QD
     Route: 048
     Dates: start: 20180222
  2. IMIPEM [CILASTATIN SODIUM;IMIPENEM] [Suspect]
     Active Substance: CILASTATIN SODIUM\IMIPENEM
     Indication: TUBERCULOSIS
     Dosage: 2000 MG, QD
     Route: 042
     Dates: start: 20180222
  3. FERRONAL [Concomitant]
     Dosage: UNK
     Dates: start: 20180603, end: 20190123
  4. AVELOX [Suspect]
     Active Substance: MOXIFLOXACIN HYDROCHLORIDE
     Dosage: 400 MG, QD
     Route: 048
     Dates: start: 20180222
  5. OMEPRAZOLE. [Concomitant]
     Active Substance: OMEPRAZOLE
     Dosage: UNK
     Dates: start: 20180221, end: 20190123
  6. URSODIOL. [Concomitant]
     Active Substance: URSODIOL
     Dosage: UNK
  7. CAPREOMYCIN [Suspect]
     Active Substance: CAPREOMYCIN
     Indication: TUBERCULOSIS
     Dosage: 1000 MG, QD
     Route: 030
     Dates: start: 20180222, end: 20180529
  8. ESSENTICAPSUM [Concomitant]
     Dosage: UNK
     Dates: start: 20180222, end: 20191019
  9. CLOFAZIMINE [Suspect]
     Active Substance: CLOFAZIMINE
     Indication: TUBERCULOSIS
     Dosage: 100 MG, QD
     Route: 048
     Dates: start: 20180222
  10. PYRIDOXIN [Concomitant]
     Active Substance: PYRIDOXINE
     Dosage: UNK
     Dates: start: 20180222, end: 20190123
  11. METOCLOPRAMIDE. [Concomitant]
     Active Substance: METOCLOPRAMIDE
     Dosage: UNK
  12. DELAMANID [Suspect]
     Active Substance: DELAMANID
     Indication: TUBERCULOSIS
     Dosage: 200 MG, QD
     Route: 048
     Dates: start: 20180222
  13. AMOXICILLIN TRIHYDRATE;CLAVULANATE POTASSIUM [Suspect]
     Active Substance: AMOXICILLIN\CLAVULANATE POTASSIUM
     Indication: TUBERCULOSIS
     Dosage: 2500 MG, QD
     Route: 048
     Dates: start: 20180222
  14. OMEPRAZOLE. [Concomitant]
     Active Substance: OMEPRAZOLE
     Dosage: UNK
     Dates: start: 20190823, end: 20190828
  15. ONDANSETRON [Concomitant]
     Active Substance: ONDANSETRON
     Dosage: UNK
     Dates: start: 20180306, end: 20190123

REACTIONS (8)
  - Blood magnesium decreased [Unknown]
  - Blood calcium decreased [Unknown]
  - Creatinine renal clearance decreased [Unknown]
  - Asthenia [None]
  - Chronic gastritis [Unknown]
  - Visual impairment [Unknown]
  - Anaemia [Recovered/Resolved]
  - Blood creatinine increased [Unknown]

NARRATIVE: CASE EVENT DATE: 20180603
